FAERS Safety Report 4347475-4 (Version None)
Quarter: 2004Q2

REPORT INFORMATION
  Report Type: 
  Country: None (occurrence: None)
  Receive Date: 20040421
  Receipt Date: 20040209
  Transmission Date: 20050107
  Serious: Yes (Other)
  Sender: FDA-Public Use
  Company Number: 2003124347

PATIENT
  Age: 37 Year
  Sex: Male
  Weight: 80.7403 kg

DRUGS (5)
  1. RELPAX [Suspect]
     Indication: MIGRAINE
     Dosage: 40 MG, ORAL
     Route: 048
     Dates: start: 20031130
  2. SUMATRIPTAN SUCCINATE [Concomitant]
  3. ROFECOXIB [Concomitant]
  4. CETIRIZINE HCL [Concomitant]
  5. VITAMINS (VITAMINS) [Concomitant]

REACTIONS (2)
  - ARTHROPATHY [None]
  - HAEMORRHAGIC DIATHESIS [None]
